FAERS Safety Report 10357314 (Version 1)
Quarter: 2014Q3

REPORT INFORMATION
  Report Type: Spontaneous
  Country: US (occurrence: None)
  Receive Date: 20140730
  Receipt Date: 20140730
  Transmission Date: 20150326
  Serious: No
  Sender: FDA-Public Use
  Company Number: None

PATIENT
  Age: 77 Year
  Sex: Male

DRUGS (8)
  1. KRILL [Concomitant]
  2. FLEX PILLS [Concomitant]
  3. B.P. [Concomitant]
  4. ASP [Concomitant]
     Active Substance: ASPIRIN
  5. MULTI. VIT [Concomitant]
  6. CYANOCOBALAMIN VA HAKEN HOSPITAL [Suspect]
     Active Substance: CYANOCOBALAMIN
     Indication: VITAMIN B12 DEFICIENCY
     Dosage: 1000 MCG?1 SHOT, MONTHLY?INJECTION?THERAPY?5 YRS AGO ?STOP DATE APR. 2, 2014
     Route: 042
     Dates: end: 20140402
  7. CHOLESTROL [Concomitant]
  8. B-6 [Concomitant]

REACTIONS (1)
  - Erythema [None]

NARRATIVE: CASE EVENT DATE: 20140101
